FAERS Safety Report 16160781 (Version 5)
Quarter: 2019Q3

REPORT INFORMATION
  Report Type: Report from Study
  Country: MA (occurrence: MA)
  Receive Date: 20190405
  Receipt Date: 20190713
  Transmission Date: 20191004
  Serious: Yes (Other)
  Sender: FDA-Public Use
  Company Number: PHHY2019MA073876

PATIENT
  Age: 26 Year
  Sex: Female

DRUGS (1)
  1. GILENYA [Suspect]
     Active Substance: FINGOLIMOD HYDROCHLORIDE
     Indication: MULTIPLE SCLEROSIS
     Dosage: 0.5 MG, QD
     Route: 048
     Dates: start: 20190307, end: 20190325

REACTIONS (7)
  - Aplasia [Recovering/Resolving]
  - Lymphocyte count decreased [Recovering/Resolving]
  - Decreased immune responsiveness [Recovering/Resolving]
  - Anisochromia [Unknown]
  - Anaemia [Recovering/Resolving]
  - Fatigue [Recovering/Resolving]
  - Bone marrow failure [Recovering/Resolving]

NARRATIVE: CASE EVENT DATE: 20190307
